FAERS Safety Report 5324537-6 (Version None)
Quarter: 2007Q2

REPORT INFORMATION
  Report Type: 
  Country: None (occurrence: None)
  Receive Date: 20070514
  Receipt Date: 20070502
  Transmission Date: 20071010
  Serious: Yes (Other)
  Sender: FDA-Public Use
  Company Number: US-PFIZER INC-2007035471

PATIENT
  Sex: Female
  Weight: 68.181 kg

DRUGS (8)
  1. SUTENT [Suspect]
     Indication: RENAL CELL CARCINOMA STAGE UNSPECIFIED
  2. FOLIC ACID [Concomitant]
  3. ZOMETA [Concomitant]
  4. TYLENOL [Concomitant]
  5. VITAMIN B-12 [Concomitant]
  6. LANOXIN [Concomitant]
  7. EVISTA [Concomitant]
  8. VITAMIN CAP [Concomitant]

REACTIONS (3)
  - COLITIS ISCHAEMIC [None]
  - DIARRHOEA [None]
  - GASTROINTESTINAL HAEMORRHAGE [None]
